FAERS Safety Report 15651940 (Version 2)
Quarter: 2018Q4

REPORT INFORMATION
  Report Type: Spontaneous
  Country: US (occurrence: US)
  Receive Date: 20181123
  Receipt Date: 20181129
  Transmission Date: 20190205
  Serious: Yes (Hospitalization)
  Sender: FDA-Public Use
  Company Number: US-ASTRAZENECA-2018SF51815

PATIENT
  Age: 61 Year
  Sex: Male
  Weight: 89 kg

DRUGS (16)
  1. CLONAPIN [Concomitant]
     Active Substance: CLONAZEPAM
  2. TYLENOL [Concomitant]
     Active Substance: ACETAMINOPHEN
     Dosage: 650MG EVERY 8 HOURS AS NEEDED
  3. PRASUGREL. [Concomitant]
     Active Substance: PRASUGREL
     Dosage: 10MG DAILY
  4. AMIODARONE [Concomitant]
     Active Substance: AMIODARONE
     Dosage: 20MG BID
  5. NITRO [Concomitant]
     Active Substance: NITROGLYCERIN
     Indication: CHEST PAIN
     Dosage: 0.4MG AS REQUIRED
     Route: 060
  6. FAMOTIDINE. [Concomitant]
     Active Substance: FAMOTIDINE
     Dosage: 40MG AT NIGHT
  7. PREVACID [Concomitant]
     Active Substance: LANSOPRAZOLE
  8. IBUPROFEN. [Concomitant]
     Active Substance: IBUPROFEN
     Dosage: 1 CAPSULE AT NIGHT
  9. CLOPIDOGREL [Concomitant]
     Active Substance: CLOPIDOGREL BISULFATE
  10. ASPIRIN. [Concomitant]
     Active Substance: ASPIRIN
  11. LOSARTAN. [Concomitant]
     Active Substance: LOSARTAN
     Dosage: 50 MG AT NIGHT
  12. DULOXETINE. [Concomitant]
     Active Substance: DULOXETINE
     Dosage: 60MG DAILY
  13. BRILINTA [Suspect]
     Active Substance: TICAGRELOR
     Indication: ACUTE MYOCARDIAL INFARCTION
     Route: 048
  14. BRILINTA [Suspect]
     Active Substance: TICAGRELOR
     Indication: ACUTE MYOCARDIAL INFARCTION
     Route: 048
  15. ROSUVASTATIN. [Suspect]
     Active Substance: ROSUVASTATIN
     Route: 048
  16. FUROSEMIDE. [Concomitant]
     Active Substance: FUROSEMIDE
     Dosage: 20MG DAILY AS NEEDED

REACTIONS (3)
  - Vascular graft thrombosis [Unknown]
  - Acute myocardial infarction [Unknown]
  - Dyspnoea [Unknown]
